FAERS Safety Report 8512236-9 (Version None)
Quarter: 2012Q3

REPORT INFORMATION
  Report Type: 
  Country: None (occurrence: None)
  Receive Date: 20120716
  Receipt Date: 20120712
  Transmission Date: 20120928
  Serious: No
  Sender: FDA-Public Use
  Company Number: US-BAYER-2012-069987

PATIENT
  Age: 77 Year
  Sex: Male

DRUGS (7)
  1. ADVAIR DISKUS 100/50 [Concomitant]
  2. VITAMIN B-12 [Concomitant]
  3. SERUMLIPIDREDUCING AGENTS [SERUMLIPIDREDUCING AGENTS] [Concomitant]
  4. HORMONES NOS [Concomitant]
  5. LEVITRA [Suspect]
     Indication: ERECTILE DYSFUNCTION
     Dosage: 1 DF, PRN
     Route: 048
  6. LEVITRA [Suspect]
     Dosage: 2 DF, ONCE
  7. VITAMIN D [Concomitant]

REACTIONS (1)
  - ERECTILE DYSFUNCTION [None]
